FAERS Safety Report 9169108 (Version 1)
Quarter: 2013Q1

REPORT INFORMATION
  Report Type: Report from Study
  Country: JP (occurrence: JP)
  Receive Date: 20130318
  Receipt Date: 20130318
  Transmission Date: 20140127
  Serious: Yes (Death, Life-Threatening)
  Sender: FDA-Public Use
  Company Number: JP-GLAXOSMITHKLINE-B0528435A

PATIENT
  Age: 63 Year
  Sex: Male
  Weight: 44 kg

DRUGS (28)
  1. ARRANON [Suspect]
     Indication: T-CELL TYPE ACUTE LEUKAEMIA
     Dosage: 1500MGK PER DAY
     Route: 042
     Dates: start: 20080623, end: 20080623
  2. ARRANON [Suspect]
     Indication: T-CELL TYPE ACUTE LEUKAEMIA
     Dosage: 1500MGK PER DAY
     Route: 042
     Dates: start: 20080625, end: 20080625
  3. ARRANON [Suspect]
     Indication: T-CELL TYPE ACUTE LEUKAEMIA
     Dosage: 1500MGK PER DAY
     Route: 042
     Dates: start: 20080627, end: 20080627
  4. INOVAN [Concomitant]
     Indication: SEPTIC SHOCK
     Route: 042
     Dates: start: 20080620, end: 20080702
  5. DOBUTREX [Concomitant]
     Indication: SEPTIC SHOCK
     Route: 042
     Dates: start: 20080624, end: 20080702
  6. NEUTROGIN [Concomitant]
     Dates: start: 20080628, end: 20080702
  7. GABEXATE MESILATE [Concomitant]
     Indication: DISSEMINATED INTRAVASCULAR COAGULATION
     Route: 042
     Dates: start: 20080620, end: 20080702
  8. PENTCILLIN [Concomitant]
     Indication: PNEUMONIA
     Dosage: 2G TWICE PER DAY
     Route: 042
     Dates: start: 20080619, end: 20080620
  9. TAZOCIN [Concomitant]
     Indication: PNEUMONIA
     Dosage: 2.5G TWICE PER DAY
     Route: 042
     Dates: start: 20080628, end: 20080701
  10. ITRIZOLE [Concomitant]
     Indication: PNEUMONIA
     Dosage: 200MG PER DAY
     Route: 042
     Dates: start: 20080619, end: 20080621
  11. MAXIPIME [Concomitant]
     Indication: PNEUMONIA
     Dosage: 2G TWICE PER DAY
     Route: 042
     Dates: start: 20080620, end: 20080627
  12. TEICOPLANIN [Concomitant]
     Route: 042
     Dates: start: 20080621, end: 20080701
  13. CRAVIT [Concomitant]
     Indication: ENTERITIS INFECTIOUS
     Dosage: 200MG TWICE PER DAY
     Route: 048
     Dates: start: 20080620, end: 20080625
  14. FLORID [Concomitant]
     Indication: OROPHARYNGITIS FUNGAL
     Route: 061
     Dates: start: 20080620, end: 20080701
  15. FAMOSTAGINE [Concomitant]
     Indication: PROPHYLAXIS AGAINST GASTROINTESTINAL ULCER
     Route: 048
     Dates: start: 20080619, end: 20080625
  16. BAKTAR [Concomitant]
     Indication: ANTIFUNGAL PROPHYLAXIS
     Route: 048
     Dates: start: 20080619, end: 20080701
  17. ZYLORIC [Concomitant]
     Indication: HYPERURICAEMIA
     Route: 048
     Dates: start: 20080619, end: 20080625
  18. RHYTHMY [Concomitant]
     Indication: INSOMNIA
     Route: 048
     Dates: start: 20080621, end: 20080621
  19. LOXONIN [Concomitant]
     Route: 048
     Dates: start: 20080620, end: 20080701
  20. CYTARABINE [Concomitant]
     Indication: NEOPLASM MALIGNANT
     Route: 042
     Dates: start: 20071016, end: 20071020
  21. CYTARABINE [Concomitant]
     Indication: NEOPLASM MALIGNANT
     Route: 042
     Dates: start: 20071122, end: 20071126
  22. TARGOCID [Concomitant]
     Indication: PNEUMONIA
     Dosage: 400MG PER DAY
     Route: 042
     Dates: start: 20080621, end: 20080702
  23. FUNGIZONE [Concomitant]
     Indication: PNEUMONIA
     Dosage: 5MG PER DAY
     Route: 042
     Dates: start: 20080621, end: 20080621
  24. FUNGIZONE [Concomitant]
     Indication: PNEUMONIA
     Dosage: 10MG PER DAY
     Route: 042
     Dates: start: 20080621, end: 20080627
  25. FUNGIZONE [Concomitant]
     Indication: PNEUMONIA
     Dosage: 15MG PER DAY
     Route: 042
     Dates: start: 20080628, end: 20080701
  26. NEUART [Concomitant]
     Indication: DISSEMINATED INTRAVASCULAR COAGULATION
     Route: 042
     Dates: start: 20080620, end: 20080620
  27. NEUART [Concomitant]
     Indication: DISSEMINATED INTRAVASCULAR COAGULATION
     Route: 042
     Dates: start: 20080622, end: 20080622
  28. NEUART [Concomitant]
     Indication: DISSEMINATED INTRAVASCULAR COAGULATION
     Route: 042
     Dates: start: 20080626, end: 20080626

REACTIONS (9)
  - Pulmonary haemorrhage [Fatal]
  - Altered state of consciousness [Not Recovered/Not Resolved]
  - Somnolence [Unknown]
  - Ventricular extrasystoles [Unknown]
  - Hypotension [Fatal]
  - Tremor [Not Recovered/Not Resolved]
  - Sepsis [Fatal]
  - Bone marrow failure [Not Recovered/Not Resolved]
  - Disorientation [Recovering/Resolving]
